FAERS Safety Report 10368671 (Version 1)
Quarter: 2014Q3

REPORT INFORMATION
  Report Type: Spontaneous
  Country: US (occurrence: US)
  Receive Date: 20140807
  Receipt Date: 20140807
  Transmission Date: 20150326
  Serious: Yes (Hospitalization)
  Sender: FDA-Public Use
  Company Number: US-PERRIGO-14US007531

PATIENT
  Age: 5 Year
  Sex: Male

DRUGS (2)
  1. ACETAMINOPHEN 650MG ER 544 [Suspect]
     Active Substance: ACETAMINOPHEN
     Indication: PRODUCT USED FOR UNKNOWN INDICATION
     Dosage: UNK, UNK
     Route: 048
     Dates: start: 2006, end: 2006
  2. IBUPROFEN 20 MG/ML CHILD BERRY 685 [Suspect]
     Active Substance: IBUPROFEN
     Indication: PRODUCT USED FOR UNKNOWN INDICATION
     Dosage: UNK, UNK
     Route: 048
     Dates: start: 2006, end: 2006

REACTIONS (8)
  - Tympanic membrane perforation [Recovered/Resolved with Sequelae]
  - Ear deformity acquired [Not Recovered/Not Resolved]
  - Ear canal stenosis [Recovered/Resolved with Sequelae]
  - Middle ear effusion [Recovered/Resolved with Sequelae]
  - Toxic epidermal necrolysis [Recovered/Resolved with Sequelae]
  - Hypoacusis [Recovering/Resolving]
  - Stevens-Johnson syndrome [Recovered/Resolved with Sequelae]
  - Tympanic membrane scarring [Recovered/Resolved with Sequelae]

NARRATIVE: CASE EVENT DATE: 200608
